FAERS Safety Report 8029256 (Version 8)
Quarter: 2012Q4

REPORT INFORMATION
  Report Type: 
  Country: US (occurrence: US)
  Receive Date: 20110711
  Receipt Date: 20121226
  Transmission Date: 20130627
  Serious: Yes (Hospitalization, Congenital Anomaly, Other)
  Sender: FDA-Public Use
  Company Number: US-PFIZER INC-2011151171

PATIENT
  Sex: Male
  Weight: 3 kg

DRUGS (15)
  1. ZOLOFT [Suspect]
     Indication: ANXIETY
     Dosage: 25 mg daily
     Route: 064
     Dates: start: 19991208, end: 199912
  2. ZOLOFT [Suspect]
     Indication: DEPRESSION
     Dosage: 50 mg daily
     Route: 064
     Dates: start: 19991223
  3. ZOLOFT [Suspect]
     Dosage: 100 mg daily
     Route: 064
     Dates: start: 20000316
  4. ZOLOFT [Suspect]
     Dosage: 100 mg daily
     Route: 064
     Dates: start: 20000601
  5. ZOLOFT [Suspect]
     Dosage: 150 mg daily
     Route: 064
     Dates: start: 20000615
  6. ZOLOFT [Suspect]
     Dosage: 100 mg, 2x/day
     Route: 064
     Dates: start: 20000717
  7. ZOLOFT [Suspect]
     Dosage: 50 mg daily
     Route: 064
     Dates: start: 20000208
  8. ZOLOFT [Suspect]
     Indication: ANXIETY
     Dosage: 100 mg one and half tablet at bed time
     Route: 064
     Dates: start: 20000418
  9. ZOLOFT [Suspect]
     Indication: DEPRESSION
     Dosage: 100 mg one and half tablet daily
     Route: 064
     Dates: start: 20001101
  10. ZOLOFT [Suspect]
     Dosage: 100 mg two tablets daily
     Route: 064
     Dates: start: 20010125
  11. PROZAC [Concomitant]
     Dosage: UNK
     Route: 064
  12. FOLATE [Concomitant]
     Dosage: UNK
     Route: 064
  13. NICOTINE PATCH [Concomitant]
     Dosage: UNK
     Route: 064
  14. CELEXA [Concomitant]
     Dosage: UNK
     Route: 064
  15. PRENATAL VITAMINS [Concomitant]
     Dosage: UNK
     Route: 064

REACTIONS (10)
  - Foetal exposure during pregnancy [Unknown]
  - Jaundice [Unknown]
  - Cleft lip [Unknown]
  - Cleft palate [Recovered/Resolved]
  - Oral cavity fistula [Unknown]
  - Congenital anomaly [Unknown]
  - Dental caries [Unknown]
  - Streptococcal infection [Unknown]
  - Oral candidiasis [Recovered/Resolved]
  - Sleep disorder [Unknown]
